FAERS Safety Report 6048082-8 (Version None)
Quarter: 2009Q1

REPORT INFORMATION
  Report Type: 
  Country: None (occurrence: None)
  Receive Date: 20090123
  Receipt Date: 20090114
  Transmission Date: 20090719
  Serious: Yes (Hospitalization, Other)
  Sender: FDA-Public Use
  Company Number: PHHY2009FR02017

PATIENT
  Sex: Female

DRUGS (13)
  1. ZOMETA [Suspect]
     Dosage: 4 MG, ONCE/SINGLE
     Route: 042
     Dates: start: 20080904
  2. SINTROM [Concomitant]
     Dosage: 1.5 DAILY DOSES
     Dates: end: 20080902
  3. PROTELOS [Concomitant]
     Dosage: 1 SACHET DAILY
     Dates: start: 20080401, end: 20080904
  4. MADOPAR [Concomitant]
     Dosage: 62.5 MG DAILY
     Dates: end: 20080903
  5. APROVEL [Concomitant]
     Dosage: 300 MG DAILY
  6. EFFERALGAN [Concomitant]
     Dosage: 500 MG, TID
  7. MOPRAL [Concomitant]
     Dosage: 10 MG DAILY
  8. TEMESTA [Concomitant]
     Dosage: 1 MG DAILY
  9. METHOTREXATE [Concomitant]
     Dosage: 10MG EVERY WEEK
     Route: 058
     Dates: start: 20080701
  10. SPECIAFOLDINE [Concomitant]
     Dosage: 5MG DAILY
  11. NYOGEL [Concomitant]
     Dosage: 0.1% EYE GEL
  12. ALPHAGAN [Concomitant]
     Dosage: 0.2% EYE DROPS, 2 DAILY APPLICATIONS
  13. LOVENOX [Concomitant]
     Dosage: 6000 IU 2 DAILY DOSES
     Route: 058
     Dates: start: 20080905

REACTIONS (8)
  - ATRIAL FIBRILLATION [None]
  - DIZZINESS [None]
  - LEUKOPENIA [None]
  - MALAISE [None]
  - PULMONARY FIBROSIS [None]
  - THROMBOCYTOPENIA [None]
  - VERTIGO [None]
  - VOMITING [None]
